FAERS Safety Report 23856272 (Version 3)
Quarter: 2025Q2

REPORT INFORMATION
  Report Type: Report from Study
  Country: JP (occurrence: JP)
  Receive Date: 20240515
  Receipt Date: 20250422
  Transmission Date: 20250716
  Serious: Yes (Other)
  Sender: NOVARTIS
  Company Number: JP-002147023-NVSJ2024JP001112

PATIENT
  Age: 60 Year
  Sex: Female

DRUGS (3)
  1. TABRECTA [Suspect]
     Active Substance: CAPMATINIB
     Indication: Non-small cell lung cancer stage IV
     Route: 048
     Dates: start: 20230627, end: 20230721
  2. TABRECTA [Suspect]
     Active Substance: CAPMATINIB
     Route: 048
     Dates: start: 20230801, end: 20230802
  3. TABRECTA [Suspect]
     Active Substance: CAPMATINIB
     Route: 048
     Dates: start: 20230913, end: 20240220

REACTIONS (5)
  - Hepatic function abnormal [Recovered/Resolved]
  - Rash [Recovering/Resolving]
  - Non-small cell lung cancer stage IV [Not Recovered/Not Resolved]
  - Malignant neoplasm progression [Not Recovered/Not Resolved]
  - Therapeutic product effect incomplete [Unknown]

NARRATIVE: CASE EVENT DATE: 20230720
